FAERS Safety Report 14392206 (Version 3)
Quarter: 2018Q1

REPORT INFORMATION
  Report Type: Spontaneous
  Country: FR (occurrence: FR)
  Receive Date: 20180116
  Receipt Date: 20180326
  Transmission Date: 20180509
  Serious: Yes (Death, Hospitalization, Other)
  Sender: FDA-Public Use
  Company Number: FR-PFIZER INC-2018017123

PATIENT
  Age: 60 Year
  Sex: Female
  Weight: 57 kg

DRUGS (5)
  1. LEVOTHYROX [Interacting]
     Active Substance: LEVOTHYROXINE
     Indication: HYPOTHYROIDISM
     Dosage: 100 UG, 1X/DAY
     Route: 048
     Dates: start: 20161130
  2. PRAVASTATIN. [Concomitant]
     Active Substance: PRAVASTATIN
     Indication: HYPERCHOLESTEROLAEMIA
     Dosage: 10 MG, 1X/DAY
     Route: 048
  3. SUTENT [Suspect]
     Active Substance: SUNITINIB MALATE
     Indication: RENAL CANCER METASTATIC
     Dosage: 37.5 MG, CYCLIC (DAILY, 2 WEEKS ON 1 WEEK OFF)
     Route: 048
     Dates: start: 20161013
  4. TEMERIT [Concomitant]
     Active Substance: NEBIVOLOL
     Indication: HYPERTENSION
     Dosage: 5 MG, 1X/DAY
     Route: 048
  5. LEVOTHYROX [Interacting]
     Active Substance: LEVOTHYROXINE
     Dosage: INCREASED
     Dates: start: 20171201

REACTIONS (10)
  - Hepatic failure [Fatal]
  - Thrombocytopenia [Unknown]
  - Cholestasis [Unknown]
  - Hypothyroidism [Unknown]
  - Platelet count decreased [Unknown]
  - Prothrombin time shortened [Unknown]
  - Drug interaction [Unknown]
  - Hepatocellular injury [Unknown]
  - Asthenia [Unknown]
  - Nausea [Unknown]

NARRATIVE: CASE EVENT DATE: 2017
